FAERS Safety Report 8969244 (Version 1)
Quarter: 2012Q4

REPORT INFORMATION
  Report Type: 
  Country: BR (occurrence: BR)
  Receive Date: 20121217
  Receipt Date: 20121217
  Transmission Date: 20130627
  Serious: Yes (Other)
  Sender: FDA-Public Use
  Company Number: PHHY2012BR115535

PATIENT
  Age: 27 Year
  Sex: Female

DRUGS (1)
  1. CICLOSPORIN [Suspect]
     Indication: MYASTHENIA GRAVIS

REACTIONS (6)
  - Neuromyelitis optica [Unknown]
  - Pain [Recovering/Resolving]
  - Optic neuritis [Unknown]
  - Hypoaesthesia [Recovering/Resolving]
  - Visual acuity reduced [Unknown]
  - Pruritus [Recovering/Resolving]
